FAERS Safety Report 18298993 (Version 1)
Quarter: 2020Q3

REPORT INFORMATION
  Report Type: Report from Study
  Country: None (occurrence: US)
  Receive Date: 20200923
  Receipt Date: 20200923
  Transmission Date: 20201103
  Serious: Yes (Other)
  Sender: FDA-Public Use
  Company Number: US-ABBVIE-20K-163-3573101-00

PATIENT
  Sex: Male

DRUGS (1)
  1. HUMIRA [Suspect]
     Active Substance: ADALIMUMAB
     Indication: RHEUMATOID ARTHRITIS
     Route: 058

REACTIONS (6)
  - Loss of personal independence in daily activities [Unknown]
  - Intervertebral disc disorder [Unknown]
  - Visual impairment [Unknown]
  - Arthropathy [Unknown]
  - Arthralgia [Unknown]
  - Spinal operation [Unknown]
